FAERS Safety Report 4756410-6 (Version None)
Quarter: 2005Q3

REPORT INFORMATION
  Report Type: 
  Country: None (occurrence: None)
  Receive Date: 20050830
  Receipt Date: 20050616
  Transmission Date: 20060218
  Serious: No
  Sender: FDA-Public Use
  Company Number: US-GLAXOSMITHKLINE-A0563003A

PATIENT
  Age: 37 Year
  Sex: Male

DRUGS (4)
  1. WELLBUTRIN XL [Suspect]
     Indication: DEPRESSION
     Dosage: 300MG PER DAY
     Route: 048
  2. DEXTROAMPHETAMINE [Concomitant]
  3. TRAZODONE [Concomitant]
  4. LITHIUM [Concomitant]

REACTIONS (1)
  - DRUG INEFFECTIVE [None]
